FAERS Safety Report 10080470 (Version 1)
Quarter: 2014Q2

REPORT INFORMATION
  Report Type: Spontaneous
  Country: GB (occurrence: GB)
  Receive Date: 20140416
  Receipt Date: 20140416
  Transmission Date: 20141212
  Serious: Yes (Other)
  Sender: FDA-Public Use
  Company Number: GB-009507513-1404GBR006492

PATIENT
  Age: 57 Year
  Sex: Female
  Weight: 72.11 kg

DRUGS (4)
  1. MIRTAZAPINE [Suspect]
     Indication: DEPRESSION
     Dosage: 45 MG, UNK
     Route: 048
     Dates: start: 201402, end: 201402
  2. MIRTAZAPINE [Suspect]
     Indication: DEPRESSION
     Dosage: 45 MG, UNK
     Route: 048
     Dates: start: 201402, end: 20140202
  3. VENLAFAXINE HYDROCHLORIDE [Suspect]
     Indication: DEPRESSION
     Route: 048
     Dates: start: 20100611, end: 20140201
  4. METRONIDAZOLE [Concomitant]
     Indication: BACTERIAL INFECTION

REACTIONS (15)
  - Muscle spasms [Recovered/Resolved]
  - Crying [Recovered/Resolved]
  - Anger [Recovered/Resolved]
  - Palpitations [Recovered/Resolved]
  - Emotional distress [Unknown]
  - Sleep terror [Unknown]
  - Abdominal discomfort [Unknown]
  - Insomnia [Unknown]
  - Suicidal ideation [Recovered/Resolved]
  - Nightmare [Unknown]
  - Diarrhoea [Recovered/Resolved]
  - Serotonin syndrome [Recovered/Resolved]
  - Paraesthesia [Unknown]
  - Mania [Unknown]
  - Drug ineffective [Unknown]
